FAERS Safety Report 12564913 (Version 1)
Quarter: 2016Q3

REPORT INFORMATION
  Report Type: Spontaneous
  Country: US (occurrence: None)
  Receive Date: 20160715
  Receipt Date: 20160715
  Transmission Date: 20161109
  Serious: No
  Sender: FDA-Public Use
  Company Number: None

PATIENT
  Sex: Male

DRUGS (4)
  1. METFORMIN [Suspect]
     Active Substance: METFORMIN HYDROCHLORIDE
  2. ASPIRIN. [Suspect]
     Active Substance: ASPIRIN
  3. GLIMEPIRIDE. [Suspect]
     Active Substance: GLIMEPIRIDE
  4. LOSARIAN [Suspect]
     Active Substance: UNSPECIFIED INGREDIENT

REACTIONS (3)
  - Shock [None]
  - Pain [None]
  - Nerve injury [None]
